FAERS Safety Report 4509758-4 (Version None)
Quarter: 2004Q4

REPORT INFORMATION
  Report Type: 
  Country: None (occurrence: None)
  Receive Date: 20041124
  Receipt Date: 20031117
  Transmission Date: 20050328
  Serious: No
  Sender: FDA-Public Use
  Company Number: US-BRISTOL-MYERS SQUIBB COMPANY-12438743

PATIENT
  Age: 66 Year
  Sex: Male
  Weight: 86 kg

DRUGS (2)
  1. AVALIDE [Suspect]
     Indication: HYPERTENSION
     Dosage: 300MG/12.5MG
     Route: 048
     Dates: start: 20020101
  2. LIPITOR [Concomitant]

REACTIONS (1)
  - FOREIGN BODY TRAUMA [None]
